FAERS Safety Report 4840763-4 (Version None)
Quarter: 2005Q4

REPORT INFORMATION
  Report Type: 
  Country: None (occurrence: None)
  Receive Date: 20051027
  Receipt Date: 20050729
  Transmission Date: 20060501
  Serious: Yes (Other)
  Sender: FDA-Public Use
  Company Number: HQWYE206917JUL04

PATIENT
  Sex: Female
  Weight: 79.45 kg

DRUGS (4)
  1. PREMARIN [Suspect]
     Indication: HORMONE REPLACEMENT THERAPY
     Dosage: ORAL
     Route: 048
     Dates: start: 19910101, end: 20000101
  2. SYNTHROID [Concomitant]
  3. NORVASC [Concomitant]
  4. FUROSEMIDE [Concomitant]

REACTIONS (1)
  - BREAST CANCER [None]
